FAERS Safety Report 17913763 (Version 3)
Quarter: 2020Q3

REPORT INFORMATION
  Report Type: Spontaneous
  Country: US (occurrence: US)
  Receive Date: 20200618
  Receipt Date: 20200820
  Transmission Date: 20201103
  Serious: Yes (Hospitalization, Other)
  Sender: FDA-Public Use
  Company Number: US-GLAXOSMITHKLINE-US2020AMR103590

PATIENT
  Age: 59 Year
  Sex: Female
  Weight: 65 kg

DRUGS (1)
  1. BREO ELLIPTA [Suspect]
     Active Substance: FLUTICASONE FUROATE\VILANTEROL TRIFENATATE
     Indication: ASTHMA
     Dosage: 1 DF, QD (1 INHALATION BY MOUTH IN LUNGS DAI;Y)
     Route: 048
     Dates: start: 201908

REACTIONS (3)
  - Respiratory disorder [Unknown]
  - Asthma [Unknown]
  - Pneumothorax [Unknown]

NARRATIVE: CASE EVENT DATE: 201908
